FAERS Safety Report 14448174 (Version 2)
Quarter: 2018Q1

REPORT INFORMATION
  Report Type: Spontaneous
  Country: US (occurrence: US)
  Receive Date: 20180126
  Receipt Date: 20180327
  Transmission Date: 20180509
  Serious: Yes (Hospitalization, Other)
  Sender: FDA-Public Use
  Company Number: US-PFIZER INC-2018027926

PATIENT
  Age: 70 Year
  Sex: Female
  Weight: 96 kg

DRUGS (2)
  1. PRAVASTATIN. [Concomitant]
     Active Substance: PRAVASTATIN
     Dosage: 10 MG, UNK
     Route: 048
  2. ADVIL [Suspect]
     Active Substance: IBUPROFEN
     Indication: BACK PAIN
     Dosage: 200 MG, 1X/DAY (ONE COATED TABLET, EVERY MORNING), FOR 2 TO 3 WEEKS
     Route: 048
     Dates: start: 2017, end: 2017

REACTIONS (8)
  - Product use issue [Recovered/Resolved]
  - Faeces discoloured [Recovered/Resolved]
  - Gastric ulcer [Unknown]
  - Fatigue [Not Recovered/Not Resolved]
  - Haemorrhage [Unknown]
  - Ulcer haemorrhage [Unknown]
  - Haemoglobin decreased [Unknown]
  - Constipation [Unknown]

NARRATIVE: CASE EVENT DATE: 20171127
